FAERS Safety Report 6255116-4 (Version None)
Quarter: 2009Q3

REPORT INFORMATION
  Report Type: 
  Country: None (occurrence: None)
  Receive Date: 20090702
  Receipt Date: 20090624
  Transmission Date: 20100115
  Serious: Yes (Death, Life-Threatening)
  Sender: FDA-Public Use
  Company Number: US-WYE-H09095009

PATIENT
  Sex: Male
  Weight: 95.34 kg

DRUGS (5)
  1. PRISTIQ [Suspect]
     Indication: MAJOR DEPRESSION
     Route: 048
     Dates: start: 20090201
  2. PRISTIQ [Suspect]
     Indication: GENERALISED ANXIETY DISORDER
  3. AMBIEN [Concomitant]
     Indication: INSOMNIA
     Route: 048
     Dates: start: 20050101
  4. LISINOPRIL [Concomitant]
     Indication: HYPERTENSION
     Dates: start: 20080101
  5. SUBOXONE [Concomitant]
     Indication: DRUG ABUSE
     Route: 060
     Dates: start: 20050101

REACTIONS (6)
  - ANEURYSM RUPTURED [None]
  - CONDITION AGGRAVATED [None]
  - HYPERTENSION [None]
  - HYPOAESTHESIA [None]
  - MUSCULAR WEAKNESS [None]
  - PARAESTHESIA [None]
